FAERS Safety Report 11934774 (Version 1)
Quarter: 2016Q1

REPORT INFORMATION
  Report Type: Spontaneous
  Country: CA (occurrence: CA)
  Receive Date: 20160121
  Receipt Date: 20160121
  Transmission Date: 20160526
  Serious: Yes (Other)
  Sender: FDA-Public Use
  Company Number: CA-TEVA-627301ACC

PATIENT
  Age: 57 Year
  Sex: Female
  Weight: 59 kg

DRUGS (10)
  1. CYMBALTA [Suspect]
     Active Substance: DULOXETINE HYDROCHLORIDE
     Indication: PAIN
  2. LIOTHYRONINE [Concomitant]
     Active Substance: LIOTHYRONINE
  3. VITAMIN B12 [Concomitant]
     Active Substance: CYANOCOBALAMIN
  4. ESTROGENS [Concomitant]
     Active Substance: ESTROGENS
  5. TRAMADOL HYDROCHLORIDE. [Concomitant]
     Active Substance: TRAMADOL HYDROCHLORIDE
  6. CLONAZEPAM. [Concomitant]
     Active Substance: CLONAZEPAM
  7. LEVOTHYROXINE. [Concomitant]
     Active Substance: LEVOTHYROXINE
  8. BUPROPION. [Suspect]
     Active Substance: BUPROPION
     Indication: DEPRESSION
     Route: 048
  9. CODEINE CONTIN [Concomitant]
     Active Substance: CODEINE SULFATE
  10. TRAZODONE [Suspect]
     Active Substance: TRAZODONE HYDROCHLORIDE
     Indication: INSOMNIA

REACTIONS (10)
  - Serotonin syndrome [Unknown]
  - Abasia [Unknown]
  - Libido decreased [Unknown]
  - Skin fissures [Unknown]
  - Weight increased [Unknown]
  - Drug withdrawal syndrome [Unknown]
  - Anorgasmia [Unknown]
  - Muscle twitching [Unknown]
  - Constipation [Unknown]
  - Urine abnormality [Unknown]
